FAERS Safety Report 10067852 (Version 1)
Quarter: 2014Q1

REPORT INFORMATION
  Report Type: Spontaneous
  Country: US (occurrence: None)
  Receive Date: 20140328
  Receipt Date: 20140328
  Transmission Date: 20141002
  Serious: Yes (Hospitalization)
  Sender: FDA-Public Use
  Company Number: 1710718

PATIENT
  Sex: 0

DRUGS (2)
  1. BUPIVACAINE HCL [Suspect]
     Indication: STEROID THERAPY
     Route: 008
  2. (CORTICOSTEROIDS) [Concomitant]

REACTIONS (2)
  - Drug effect prolonged [None]
  - Product quality issue [None]
